FAERS Safety Report 4368690-X (Version None)
Quarter: 2004Q2

REPORT INFORMATION
  Report Type: 
  Country: None (occurrence: None)
  Receive Date: 20040528
  Receipt Date: 20040518
  Transmission Date: 20050107
  Serious: Yes (Other)
  Sender: FDA-Public Use
  Company Number: JP-JNJFOC-20040505684

PATIENT
  Age: 75 Year
  Sex: Female

DRUGS (7)
  1. ITRACONAZOLE [Suspect]
     Indication: ONYCHOMYCOSIS
     Dosage: 400 MG, IN 1 DAY, ORAL
     Route: 048
     Dates: start: 20040430
  2. NIFEDIPINE [Concomitant]
  3. FLUVOXAMINE MALEATE [Concomitant]
  4. ALPRAZOLAM [Concomitant]
  5. GEFARNATE (GEFARNATE) [Concomitant]
  6. CIMETIDINE [Concomitant]
  7. TEPRENONE (TEPRENONE) [Concomitant]

REACTIONS (3)
  - CARDIOMEGALY [None]
  - OEDEMA PERIPHERAL [None]
  - PLEURAL EFFUSION [None]
